FAERS Safety Report 4475074-2 (Version None)
Quarter: 2004Q4

REPORT INFORMATION
  Report Type: 
  Country: None (occurrence: None)
  Receive Date: 20041015
  Receipt Date: 20041006
  Transmission Date: 20050328
  Serious: Yes (Death)
  Sender: FDA-Public Use
  Company Number: US-JNJFOC-20041002262

PATIENT
  Sex: Female
  Weight: 65.32 kg

DRUGS (11)
  1. REMICADE [Suspect]
     Indication: RHEUMATOID ARTHRITIS
     Dosage: LAST INFSUION
     Route: 042
  2. PREDNISONE [Concomitant]
  3. FOSAMAX [Concomitant]
  4. DARVOCET [Concomitant]
  5. DARVOCET [Concomitant]
  6. ARAVA [Concomitant]
  7. ALBUTEROL [Concomitant]
  8. NORVASC [Concomitant]
  9. AMBIEN [Concomitant]
  10. DETROL VA [Concomitant]
  11. DURAGESIC [Concomitant]

REACTIONS (1)
  - DEATH [None]
